FAERS Safety Report 7933697-X (Version None)
Quarter: 2011Q4

REPORT INFORMATION
  Report Type: 
  Country: None (occurrence: None)
  Receive Date: 20111122
  Receipt Date: 20111111
  Transmission Date: 20120403
  Serious: Yes (Other)
  Sender: FDA-Public Use
  Company Number: PHHY2011US100750

PATIENT
  Age: 8 Year
  Sex: Male

DRUGS (6)
  1. FLUDARABINE PHOSPHATE [Concomitant]
     Indication: STEM CELL TRANSPLANT
     Dosage: 30 MG/M2 AT DAYS 5 TO 2
  2. BUSULFAN [Concomitant]
     Indication: STEM CELL TRANSPLANT
     Dosage: 0.8 TO 1 MG/KG ON DAYS 9 TO 6 BEFORE TRANSPLANTATION EVERY 6 HOURS FOR 16 DOSES
     Route: 042
  3. ALEMTUZUMAB [Concomitant]
     Indication: STEM CELL TRANSPLANT
  4. CYCLOPHOSPHAMIDE [Concomitant]
     Indication: STEM CELL TRANSPLANT
     Dosage: 50 MG/KG AT DAYS 5 AND 2
  5. CYCLOSPORINE [Suspect]
     Indication: STEM CELL TRANSPLANT
  6. METHOTREXATE [Concomitant]
     Indication: STEM CELL TRANSPLANT

REACTIONS (7)
  - BRONCHOPULMONARY ASPERGILLOSIS [None]
  - LUNG INFILTRATION [None]
  - RESPIRATORY DISORDER [None]
  - CYTOMEGALOVIRUS INFECTION [None]
  - PYREXIA [None]
  - ASTHMA [None]
  - LUNG NEOPLASM [None]
